FAERS Safety Report 16644196 (Version 2)
Quarter: 2019Q3

REPORT INFORMATION
  Report Type: Spontaneous
  Country: US (occurrence: US)
  Receive Date: 20190729
  Receipt Date: 20190808
  Transmission Date: 20191004
  Serious: No
  Sender: FDA-Public Use
  Company Number: US-SUNOVION-2019SUN003056

PATIENT
  Age: 55 Year
  Sex: Female

DRUGS (3)
  1. LATUDA [Suspect]
     Active Substance: LURASIDONE HYDROCHLORIDE
     Dosage: 20 MG
     Route: 048
  2. LAMICTAL [Suspect]
     Active Substance: LAMOTRIGINE
     Dosage: UNK MG
  3. KLONOPIN [Suspect]
     Active Substance: CLONAZEPAM
     Dosage: UNK

REACTIONS (9)
  - Mental disorder [Unknown]
  - Anxiety [Unknown]
  - Muscle spasms [Unknown]
  - Insomnia [Unknown]
  - Tachyphrenia [Unknown]
  - Product dose omission [Unknown]
  - Crying [Unknown]
  - Blood cholesterol increased [Unknown]
  - Formication [Unknown]

NARRATIVE: CASE EVENT DATE: 201907
